FAERS Safety Report 20024050 (Version 1)
Quarter: 2021Q4

REPORT INFORMATION
  Report Type: Spontaneous
  Country: DE (occurrence: DE)
  Receive Date: 20211102
  Receipt Date: 20211102
  Transmission Date: 20220303
  Serious: Yes (Hospitalization, Other)
  Sender: FDA-Public Use
  Company Number: DE-ADRED-06841-01

PATIENT
  Age: 78 Year
  Sex: Male

DRUGS (10)
  1. TORSEMIDE [Suspect]
     Active Substance: TORSEMIDE
     Indication: Product used for unknown indication
     Dosage: 40 MILLIGRAM, QD (20 MG, 1-1-0-0, TABLETTEN)
     Route: 048
  2. INDAPAMIDE [Suspect]
     Active Substance: INDAPAMIDE
     Indication: Product used for unknown indication
     Dosage: 1.5 MILLIGRAM, QD
     Route: 048
  3. APIXABAN [Suspect]
     Active Substance: APIXABAN
     Indication: Product used for unknown indication
     Dosage: 5 MG, 0.5-0-0.5-0, TABLETTEN
     Route: 048
  4. PANTOPRAZOL                        /01263201/ [Concomitant]
     Dosage: 40 MILLIGRAM, QD
     Route: 048
  5. SODIUM PICOSULFATE [Concomitant]
     Active Substance: SODIUM PICOSULFATE
     Dosage: 10 GTT DROPS, QD
     Route: 048
  6. SPIRONOLACTONE [Concomitant]
     Active Substance: SPIRONOLACTONE
     Dosage: 25 MILLIGRAM, QD (50 MG, 0.5-0-0-0, TABLETTEN)
     Route: 048
  7. LACTULOSE [Concomitant]
     Active Substance: LACTULOSE
     Dosage: 10 MILLILITER, Q8H
     Route: 048
  8. MOVICOL                            /01749801/ [Concomitant]
     Dosage: MAXIMUM FIVE TIMES DAILY, DROPS
     Route: 048
  9. METAMIZOL                          /06276701/ [Concomitant]
     Dosage: 30 GTT, MAXIMUM FIVE TIMES DAILY, DROPS
     Route: 048
  10. BALDRIAN                           /01561601/ [Concomitant]
     Dosage: 400 MG, 0-0-0-1, KAPSELN
     Route: 048

REACTIONS (5)
  - Abdominal discomfort [Unknown]
  - Dizziness [Unknown]
  - Waist circumference increased [Unknown]
  - Dyspnoea [Unknown]
  - Haematochezia [Unknown]
